FAERS Safety Report 20323320 (Version 3)
Quarter: 2022Q2

REPORT INFORMATION
  Report Type: Spontaneous
  Country: BE (occurrence: BE)
  Receive Date: 20220111
  Receipt Date: 20220412
  Transmission Date: 20220721
  Serious: Yes (Other)
  Sender: FDA-Public Use
  Company Number: BE-JNJFOC-20211238980

PATIENT

DRUGS (7)
  1. METHOTREXATE SODIUM [Suspect]
     Active Substance: METHOTREXATE SODIUM
     Dosage: UNK
     Route: 065
     Dates: start: 2019
  2. METHOTREXATE SODIUM [Suspect]
     Active Substance: METHOTREXATE SODIUM
     Dosage: UNK
     Route: 065
     Dates: start: 202011
  3. STELARA [Suspect]
     Active Substance: USTEKINUMAB
     Dosage: UNK
     Route: 058
     Dates: start: 202101
  4. ENTOCORT [Suspect]
     Active Substance: BUDESONIDE
     Dosage: UNK UNK, MONTHLY
     Route: 065
     Dates: start: 2019
  5. ENTOCORT [Suspect]
     Active Substance: BUDESONIDE
     Dosage: 9 MG
     Route: 065
     Dates: start: 202110
  6. ENTOCORT [Suspect]
     Active Substance: BUDESONIDE
     Dosage: 9 MG
     Dates: start: 202011
  7. ENTOCORT [Suspect]
     Active Substance: BUDESONIDE
     Dosage: 3 MG
     Route: 065

REACTIONS (4)
  - Follicular lymphoma [Not Recovered/Not Resolved]
  - Enteritis [Not Recovered/Not Resolved]
  - Diarrhoea [Unknown]
  - Nausea [Unknown]
